FAERS Safety Report 8771686 (Version 2)
Quarter: 2012Q4

REPORT INFORMATION
  Report Type: 
  Country: FR (occurrence: FR)
  Receive Date: 20120906
  Receipt Date: 20121009
  Transmission Date: 20130627
  Serious: Yes (Hospitalization, Other)
  Sender: FDA-Public Use
  Company Number: FR-MERCK-1208FRA005061

PATIENT
  Age: 64 Year
  Sex: Male
  Weight: 72 kg

DRUGS (7)
  1. INTRONA [Suspect]
     Indication: MYCOSIS FUNGOIDES
     Dosage: UNK IU, UNK
     Dates: start: 201105, end: 201201
  2. INTRONA [Suspect]
     Dosage: UNK
     Dates: start: 201201, end: 201208
  3. METFORMIN [Concomitant]
     Indication: DIABETES MELLITUS
     Dosage: 850 mg, UNK
     Route: 048
  4. CELECTOL [Concomitant]
     Indication: HYPERTENSION
     Dosage: UNK
     Route: 048
  5. XATRAL LP [Concomitant]
     Indication: BENIGN PROSTATIC HYPERPLASIA
     Route: 048
  6. TAHOR [Concomitant]
     Indication: HYPERCHOLESTEROLAEMIA
     Route: 048
  7. PANTOPRAZOLE [Concomitant]
     Indication: GASTRODUODENAL ULCER

REACTIONS (3)
  - VIth nerve paralysis [Not Recovered/Not Resolved]
  - Diplopia [Not Recovered/Not Resolved]
  - Lymphoma [Not Recovered/Not Resolved]
